FAERS Safety Report 23682331 (Version 1)
Quarter: 2024Q1

REPORT INFORMATION
  Report Type: Spontaneous
  Country: CN (occurrence: CN)
  Receive Date: 20240328
  Receipt Date: 20240328
  Transmission Date: 20240410
  Serious: Yes (Hospitalization)
  Sender: FDA-Public Use
  Company Number: CN-BAYER-2024A044597

PATIENT
  Age: 58 Year
  Sex: Male
  Weight: 60 kg

DRUGS (4)
  1. KOVALTRY [Suspect]
     Active Substance: ANTIHEMOPHILIC FACTOR, HUMAN RECOMBINANT
     Indication: Postoperative care
     Dosage: 200 MG, Q3WK
     Route: 041
     Dates: start: 20240229, end: 20240229
  2. KOVALTRY [Suspect]
     Active Substance: ANTIHEMOPHILIC FACTOR, HUMAN RECOMBINANT
     Indication: Postoperative care
     Dosage: 200 MG, Q3WK
     Route: 041
     Dates: start: 20240229, end: 20240229
  3. SODIUM CHLORIDE [Concomitant]
     Active Substance: SODIUM CHLORIDE
     Indication: Vehicle solution use
     Dosage: 80 ML, Q3WK
     Route: 041
     Dates: start: 20240229, end: 20240229
  4. SINTILIMAB [Concomitant]
     Active Substance: SINTILIMAB
     Indication: Immunomodulatory therapy
     Dosage: 200 MG, Q3WK, DISSOLVED IN 80ML 0.9% SODIUM CHLORIDE INJECTION
     Route: 041
     Dates: start: 20240229

REACTIONS (2)
  - Neutrophil count decreased [Unknown]
  - Off label use [None]

NARRATIVE: CASE EVENT DATE: 20240229
